FAERS Safety Report 20128226 (Version 1)
Quarter: 2021Q4

REPORT INFORMATION
  Report Type: Spontaneous
  Country: FR (occurrence: FR)
  Receive Date: 20211129
  Receipt Date: 20211129
  Transmission Date: 20220303
  Serious: Yes (Death, Hospitalization, Other)
  Sender: FDA-Public Use
  Company Number: None

PATIENT
  Age: 83 Year
  Sex: Male
  Weight: 97 kg

DRUGS (2)
  1. KINERET [Suspect]
     Active Substance: ANAKINRA
     Indication: Chondrocalcinosis
     Dosage: SOLUTION FOR INJECTION IN PRE-FILLED SYRINGE
     Route: 058
     Dates: start: 201806, end: 20211005
  2. METHOTREXATE [Suspect]
     Active Substance: METHOTREXATE
     Indication: Chondrocalcinosis
     Route: 048
     Dates: start: 20191210, end: 20211005

REACTIONS (2)
  - Pneumonia fungal [Fatal]
  - Lymphopenia [Recovering/Resolving]

NARRATIVE: CASE EVENT DATE: 20211001
